FAERS Safety Report 21950161 (Version 1)
Quarter: 2023Q1

REPORT INFORMATION
  Report Type: Spontaneous
  Country: JP (occurrence: JP)
  Receive Date: 20230203
  Receipt Date: 20230203
  Transmission Date: 20230418
  Serious: Yes (Death)
  Sender: FDA-Public Use
  Company Number: JP-JAZZ-2021-JP-017727

PATIENT
  Age: 22 Year
  Sex: Female
  Weight: 49 kg

DRUGS (1)
  1. DEFITELIO [Suspect]
     Active Substance: DEFIBROTIDE SODIUM
     Indication: Venoocclusive liver disease
     Dosage: 25 MILLIGRAM/KILOGRAM, QD
     Route: 042
     Dates: start: 20200717, end: 20201004

REACTIONS (1)
  - Device connection issue [Fatal]

NARRATIVE: CASE EVENT DATE: 20201017
